FAERS Safety Report 9081896 (Version 1)
Quarter: 2013Q1

REPORT INFORMATION
  Report Type: Report from Study
  Country: US (occurrence: US)
  Receive Date: 20130130
  Receipt Date: 20130130
  Transmission Date: 20140127
  Serious: No
  Sender: FDA-Public Use
  Company Number: US-ABBOTT-12P-163-0959418-00

PATIENT
  Age: 45 Year
  Sex: Male

DRUGS (5)
  1. HUMIRA 40 MG/0.8 ML PEN [Suspect]
     Indication: PSORIATIC ARTHROPATHY
     Dates: start: 201205
  2. CELEBREX [Concomitant]
     Indication: PSORIATIC ARTHROPATHY
     Dosage: ONE TABLET DAILY
     Route: 048
  3. METHOTREXATE [Concomitant]
     Indication: PSORIATIC ARTHROPATHY
     Dosage: 15 TABLETS
     Route: 048
  4. FOLIC ACID [Concomitant]
     Indication: PSORIATIC ARTHROPATHY
     Dosage: ONE TABLET DAILY
     Route: 048
  5. LITHOBID [Concomitant]
     Indication: AFFECTIVE DISORDER
     Dosage: 4 TABLETS DAILY

REACTIONS (1)
  - Injection site pain [Recovered/Resolved]
